FAERS Safety Report 15355764 (Version 1)
Quarter: 2018Q3

REPORT INFORMATION
  Report Type: Report from Study
  Country: None (occurrence: DE)
  Receive Date: 20180906
  Receipt Date: 20180906
  Transmission Date: 20181010
  Serious: Yes (Hospitalization)
  Sender: FDA-Public Use
  Company Number: DE-ABBVIE-18S-062-2475285-00

PATIENT
  Sex: Male

DRUGS (1)
  1. DUODOPA [Suspect]
     Active Substance: CARBIDOPA\LEVODOPA
     Indication: PARKINSON^S DISEASE
     Dosage: MD 0.0 ML; CRD 2.6 ML/H; CRN 2.6 ML/H; ED 1.6 ML
     Route: 050
     Dates: start: 20170302

REACTIONS (2)
  - Secretion discharge [Not Recovered/Not Resolved]
  - Stoma site inflammation [Not Recovered/Not Resolved]
